FAERS Safety Report 25997146 (Version 1)
Quarter: 2025Q4

REPORT INFORMATION
  Report Type: Other
  Country: GB (occurrence: GB)
  Receive Date: 20251104
  Receipt Date: 20251104
  Transmission Date: 20260118
  Serious: Yes (Other)
  Sender: GLENMARK
  Company Number: GB-MHRA-TPP3686285C27777531YC1761037901236

PATIENT
  Age: 38 Year
  Sex: Male
  Weight: 85 kg

DRUGS (10)
  1. DAPAGLIFLOZIN [Suspect]
     Active Substance: DAPAGLIFLOZIN
     Indication: Ill-defined disorder
     Dosage: 10 MILLIGRAM, QD
     Route: 065
     Dates: start: 20251001
  2. GLICLAZIDE [Concomitant]
     Active Substance: GLICLAZIDE
     Indication: Ill-defined disorder
     Dosage: UNK, QD (ONE ONCE DAILY BEFORE BREAKFAST)
     Route: 065
     Dates: start: 20230209, end: 20251001
  3. METFORMIN [Concomitant]
     Active Substance: METFORMIN HYDROCHLORIDE
     Indication: Ill-defined disorder
     Dosage: UNK, BID (TAKE ONE TWICE DAILY)
     Route: 065
     Dates: start: 20230209
  4. OMEPRAZOLE [Concomitant]
     Active Substance: OMEPRAZOLE
     Indication: Dyspepsia
     Dosage: 1 DOSAGE FORM, QD (TAKE ONE CAPSULE DAILY TO HELP PREVENT INDIGEST)
     Route: 065
     Dates: start: 20230209
  5. OMEPRAZOLE [Concomitant]
     Active Substance: OMEPRAZOLE
     Indication: Prophylaxis
  6. RISPERIDONE [Concomitant]
     Active Substance: RISPERIDONE
     Indication: Ill-defined disorder
     Dosage: 1 DOSAGE FORM, QD (1 TABLET AT NIGHT)
     Route: 065
     Dates: start: 20230209
  7. SERTRALINE [Concomitant]
     Active Substance: SERTRALINE HYDROCHLORIDE
     Indication: Ill-defined disorder
     Dosage: 2 DOSAGE FORM, OD (2 TABLETS ONCE DAILY)
     Route: 065
     Dates: start: 20230209
  8. ATORVASTATIN [Concomitant]
     Active Substance: ATORVASTATIN
     Indication: Ill-defined disorder
     Dosage: UNK, QD (TAKE ONE DAILY)
     Route: 065
     Dates: start: 20240902
  9. GABAPENTIN [Concomitant]
     Active Substance: GABAPENTIN
     Indication: Ill-defined disorder
     Dosage: UNK, QID (ONE IN THE MORNING, ONE AT LUNCH AND 2 AT NIGHT)
     Route: 065
     Dates: start: 20241024
  10. Extra [Concomitant]
     Indication: Ill-defined disorder
     Dosage: UNK (USE AS DIRECTED)
     Route: 065
     Dates: start: 20250715, end: 20251006

REACTIONS (4)
  - Tremor [Recovering/Resolving]
  - Diarrhoea [Recovering/Resolving]
  - Nausea [Recovering/Resolving]
  - Dizziness [Recovering/Resolving]
